FAERS Safety Report 5717764-7 (Version None)
Quarter: 2008Q2

REPORT INFORMATION
  Report Type: 
  Country: None (occurrence: None)
  Receive Date: 20080425
  Receipt Date: 20080414
  Transmission Date: 20081010
  Serious: Yes (Hospitalization, Other)
  Sender: FDA-Public Use
  Company Number: US-AMGEN-QUU274498

PATIENT
  Sex: Female

DRUGS (3)
  1. ENBREL [Suspect]
     Indication: RHEUMATOID ARTHRITIS
     Route: 058
     Dates: start: 20050308
  2. PLAQUENIL [Concomitant]
     Dates: start: 20060101
  3. SULFASALAZINE [Concomitant]
     Dates: start: 20060101

REACTIONS (9)
  - ARTHRALGIA [None]
  - BILE DUCT STONE [None]
  - BILIARY TRACT INFECTION [None]
  - FATIGUE [None]
  - INJECTION SITE RASH [None]
  - PETECHIAE [None]
  - PYREXIA [None]
  - RHEUMATOID ARTHRITIS [None]
  - VULVOVAGINAL BURNING SENSATION [None]
